FAERS Safety Report 5917655-2 (Version None)
Quarter: 2008Q4

REPORT INFORMATION
  Report Type: 
  Country: None (occurrence: None)
  Receive Date: 20081010
  Receipt Date: 20081010
  Transmission Date: 20090506
  Serious: Yes (Other)
  Sender: FDA-Public Use
  Company Number: None

PATIENT
  Sex: Female
  Weight: 70.3075 kg

DRUGS (2)
  1. CARDURA [Suspect]
     Indication: OLIGURIA
  2. CARDURA [Suspect]
     Indication: URINARY TRACT PAIN

REACTIONS (1)
  - HEPATITIS [None]
